FAERS Safety Report 7756530-8 (Version None)
Quarter: 2011Q3

REPORT INFORMATION
  Report Type: 
  Country: None (occurrence: None)
  Receive Date: 20110916
  Receipt Date: 20110912
  Transmission Date: 20111222
  Serious: Yes (Hospitalization)
  Sender: FDA-Public Use
  Company Number: CHPA2011US12346

PATIENT
  Age: 91 Year
  Sex: Female

DRUGS (5)
  1. BENEFIBER W/ WHEAT DEXTRIN [Suspect]
     Indication: NUTRITIONAL SUPPORT
     Dosage: 6 TSP, QD
     Route: 048
     Dates: start: 20110101
  2. DIOVAN [Concomitant]
     Dosage: UNK DF, QD
     Route: 048
     Dates: end: 20110901
  3. DIOVAN [Concomitant]
     Indication: HYPERTENSION
     Dosage: UNK DF, BID
     Route: 048
  4. METOPROLOL TARTRATE [Concomitant]
     Indication: HYPERTENSION
     Dosage: UNK DF, UNK
     Route: 048
  5. BENAZEPRIL HYDROCHLORIDE [Concomitant]
     Indication: HYPERTENSION
     Dosage: UNK DF, UNK
     Route: 048

REACTIONS (2)
  - HYPERTENSION [None]
  - CONDITION AGGRAVATED [None]
